FAERS Safety Report 9655845 (Version 1)
Quarter: 2013Q4

REPORT INFORMATION
  Report Type: Other
  Country: GB (occurrence: GB)
  Receive Date: 20131030
  Receipt Date: 20131030
  Transmission Date: 20140711
  Serious: Yes (Hospitalization, Other)
  Sender: FDA-Public Use
  Company Number: GB-ACTELION-A-CH2013-90411

PATIENT
  Age: 28 Year
  Sex: Female

DRUGS (3)
  1. TRACLEER [Suspect]
     Indication: PULMONARY ARTERIAL HYPERTENSION
     Route: 048
  2. FUROSEMIDE [Concomitant]
  3. OXYGEN [Concomitant]

REACTIONS (9)
  - Lung transplant [Unknown]
  - Ventricular fibrillation [Unknown]
  - Haemodynamic instability [Unknown]
  - Cardiac disorder [Unknown]
  - Infarction [Unknown]
  - Necrosis [Unknown]
  - HLA marker study positive [Unknown]
  - Partial lung resection [Unknown]
  - Pneumonectomy [Unknown]
